FAERS Safety Report 7492585-6 (Version None)
Quarter: 2011Q2

REPORT INFORMATION
  Report Type: 
  Country: None (occurrence: None)
  Receive Date: 20110519
  Receipt Date: 20110513
  Transmission Date: 20111010
  Serious: Yes (Hospitalization)
  Sender: FDA-Public Use
  Company Number: US-GILEAD-2011-0039566

PATIENT
  Age: 38 Year
  Sex: Female

DRUGS (2)
  1. LETAIRIS [Suspect]
     Indication: PRODUCT USED FOR UNKNOWN INDICATION
     Route: 048
     Dates: start: 20070914, end: 20110513
  2. FLOLAN [Concomitant]

REACTIONS (4)
  - VOMITING [None]
  - GASTROINTESTINAL INFECTION [None]
  - DIARRHOEA [None]
  - NAUSEA [None]
